FAERS Safety Report 9356751 (Version 1)
Quarter: 2013Q2

REPORT INFORMATION
  Report Type: Report from Study
  Country: CA (occurrence: CA)
  Receive Date: 20130619
  Receipt Date: 20130619
  Transmission Date: 20140414
  Serious: Yes (Death)
  Sender: FDA-Public Use
  Company Number: PHHY2013CA051592

PATIENT
  Sex: Male

DRUGS (3)
  1. SANDOSTATIN (OCTREOTIDE ACETATE) [Suspect]
     Indication: PANCREATIC CARCINOMA
     Dosage: 70 UG, TID
     Route: 058
  2. SANDOSTATIN (OCTREOTIDE ACETATE) [Suspect]
     Dosage: 70 UG, BID
     Route: 058
  3. SANDOSTATIN LAR [Suspect]
     Indication: PANCREATIC CARCINOMA
     Dosage: 10 MG, QMO
     Route: 030
     Dates: start: 20130517, end: 20130517

REACTIONS (7)
  - Death [Fatal]
  - Wound [Recovered/Resolved]
  - Fatigue [Unknown]
  - Abdominal pain upper [Not Recovered/Not Resolved]
  - Abdominal pain [Unknown]
  - Infrequent bowel movements [Recovering/Resolving]
  - Decreased appetite [Unknown]
